FAERS Safety Report 7809457-7 (Version None)
Quarter: 2011Q4

REPORT INFORMATION
  Report Type: 
  Country: None (occurrence: None)
  Receive Date: 20111012
  Receipt Date: 20110929
  Transmission Date: 20120403
  Serious: Yes (Hospitalization, Other)
  Sender: FDA-Public Use
  Company Number: PHHY2011AU82517

PATIENT
  Sex: Male

DRUGS (7)
  1. CLOZAPINE [Suspect]
     Dosage: 12.5 MG,
  2. VALPROATE SODIUM [Concomitant]
     Indication: AFFECTIVE DISORDER
     Dosage: 500 MG, BD
  3. CLOZAPINE [Suspect]
     Indication: SCHIZOPHRENIA
     Dosage: 350 MG
     Dates: start: 20110729, end: 20110909
  4. THIAMINE HCL [Concomitant]
     Dosage: 100 MG, DAILY
  5. RISPERDAL CONSTA [Concomitant]
     Indication: SCHIZOPHRENIA
     Dosage: 37.5 MG, EVERY TWO WEEKS
  6. CLOZAPINE [Suspect]
     Dosage: 250 MG,
  7. CELECOXIB [Concomitant]
     Indication: BACK PAIN
     Dosage: 100 MG, DAILY

REACTIONS (15)
  - HYPERHIDROSIS [None]
  - HYPOTENSION [None]
  - RED BLOOD CELL SEDIMENTATION RATE INCREASED [None]
  - TROPONIN INCREASED [None]
  - CHILLS [None]
  - LEUKOPENIA [None]
  - LEUKOCYTOSIS [None]
  - RED BLOOD CELL COUNT INCREASED [None]
  - URINARY TRACT INFECTION [None]
  - NEUTROPENIA [None]
  - TYPE IV HYPERSENSITIVITY REACTION [None]
  - EOSINOPHILIA [None]
  - BODY TEMPERATURE INCREASED [None]
  - C-REACTIVE PROTEIN INCREASED [None]
  - CHEST PAIN [None]
